FAERS Safety Report 7546184-8 (Version None)
Quarter: 2011Q2

REPORT INFORMATION
  Report Type: 
  Country: None (occurrence: None)
  Receive Date: 20110614
  Receipt Date: 20031028
  Transmission Date: 20111010
  Serious: Yes (Hospitalization)
  Sender: FDA-Public Use
  Company Number: PHFR2003GB03635

PATIENT
  Sex: Female

DRUGS (2)
  1. FERROUS SULFATE TAB [Concomitant]
     Indication: ANAEMIA
     Route: 065
  2. CLOZAPINE [Suspect]
     Indication: SCHIZOPHRENIA
     Dosage: 250MG/DAY
     Route: 048
     Dates: start: 20030107

REACTIONS (6)
  - MOBILITY DECREASED [None]
  - URINARY TRACT INFECTION [None]
  - URINARY INCONTINENCE [None]
  - HUMERUS FRACTURE [None]
  - ROAD TRAFFIC ACCIDENT [None]
  - HAEMOGLOBIN DECREASED [None]
